FAERS Safety Report 6112021-1 (Version None)
Quarter: 2009Q1

REPORT INFORMATION
  Report Type: 
  Country: None (occurrence: None)
  Receive Date: 20090310
  Receipt Date: 20090302
  Transmission Date: 20090719
  Serious: Yes (Other)
  Sender: FDA-Public Use
  Company Number: ZYD-09-AE-012

PATIENT
  Age: 57 Year
  Sex: Male

DRUGS (4)
  1. RIBAVIRIN [Suspect]
     Indication: HEPATITIS C
     Dosage: 1000MG DAILY,
     Dates: start: 20080901, end: 20090121
  2. PEG-INTERFERON ALFA 2A (ROCHE) (RO 25-8310) [Suspect]
     Indication: HEPATITIS C
     Dosage: 180 MCG, WEEKLY,
     Dates: start: 20080901, end: 20090121
  3. AMBIEN [Concomitant]
  4. MEGESTROL ACETATE (MEGESTROL) [Concomitant]

REACTIONS (15)
  - ANAEMIA [None]
  - ASTHENIA [None]
  - BLOOD GLUCOSE DECREASED [None]
  - BLOOD GLUCOSE FLUCTUATION [None]
  - CATARACT [None]
  - DECREASED APPETITE [None]
  - DIZZINESS [None]
  - FATIGUE [None]
  - HEADACHE [None]
  - HEPATIC NEOPLASM MALIGNANT [None]
  - LOSS OF CONSCIOUSNESS [None]
  - NAUSEA [None]
  - PYREXIA [None]
  - VISUAL IMPAIRMENT [None]
  - VOMITING [None]
